FAERS Safety Report 9907161 (Version 2)
Quarter: 2014Q1

REPORT INFORMATION
  Report Type: Spontaneous
  Country: US (occurrence: US)
  Receive Date: 20140218
  Receipt Date: 20140220
  Transmission Date: 20141002
  Serious: Yes (Death, Hospitalization, Other)
  Sender: FDA-Public Use
  Company Number: US-JNJFOC-20140209669

PATIENT
  Age: 78 Year
  Sex: Male

DRUGS (1)
  1. IMBRUVICA [Suspect]
     Indication: MANTLE CELL LYMPHOMA
     Route: 048
     Dates: start: 20140106

REACTIONS (5)
  - Respiratory failure [Fatal]
  - Diastolic dysfunction [Not Recovered/Not Resolved]
  - Encephalopathy [Unknown]
  - Anaemia [Recovering/Resolving]
  - Mantle cell lymphoma [Not Recovered/Not Resolved]
